FAERS Safety Report 13236962 (Version 15)
Quarter: 2021Q4

REPORT INFORMATION
  Report Type: Spontaneous
  Country: US (occurrence: US)
  Receive Date: 20170215
  Receipt Date: 20211018
  Transmission Date: 20220303
  Serious: Yes (Other)
  Sender: FDA-Public Use
  Company Number: US-INCYTE CORPORATION-2017IN000876

PATIENT

DRUGS (22)
  1. JAKAFI [Suspect]
     Active Substance: RUXOLITINIB
     Indication: Myelofibrosis
     Dosage: 20 MG, BID
     Route: 048
     Dates: start: 20160808
  2. JAKAFI [Suspect]
     Active Substance: RUXOLITINIB
     Dosage: 20 MILLIGRAM, BID
     Route: 048
     Dates: start: 20150810
  3. JAKAFI [Suspect]
     Active Substance: RUXOLITINIB
     Dosage: 20 MILLIGRAM, BID
     Route: 048
  4. TYLENOL [Suspect]
     Active Substance: ACETAMINOPHEN
     Indication: Headache
     Route: 065
  5. BUSPIRONE [Suspect]
     Active Substance: BUSPIRONE HYDROCHLORIDE
     Indication: Product used for unknown indication
     Route: 065
  6. LOSARTAN [Suspect]
     Active Substance: LOSARTAN
     Indication: Hypertension
     Route: 065
  7. ALPRAZOLAM [Concomitant]
     Active Substance: ALPRAZOLAM
     Indication: Product used for unknown indication
     Route: 065
  8. ERGOCALCIFEROL [Concomitant]
     Active Substance: ERGOCALCIFEROL
     Indication: Product used for unknown indication
     Route: 065
  9. VITAMIN D3 [Concomitant]
     Active Substance: CHOLECALCIFEROL
     Indication: Product used for unknown indication
     Dosage: 5000UNITS
     Route: 065
  10. HYDROCHLOROTHIAZIDE\LOSARTAN [Concomitant]
     Active Substance: HYDROCHLOROTHIAZIDE\LOSARTAN
     Indication: Product used for unknown indication
     Dosage: 100-25
     Route: 065
  11. EXCEDRIN [Concomitant]
     Active Substance: ACETAMINOPHEN\ASPIRIN\CAFFEINE
     Indication: Product used for unknown indication
     Route: 065
  12. AMLODIPINE [Concomitant]
     Active Substance: AMLODIPINE BESYLATE
     Indication: Product used for unknown indication
     Route: 065
  13. ALEVE [Concomitant]
     Active Substance: NAPROXEN SODIUM
     Indication: Bone disorder
     Route: 065
  14. FLONASE [Concomitant]
     Active Substance: FLUTICASONE PROPIONATE
     Indication: Respiration abnormal
     Dosage: PRN
     Route: 065
  15. ALBUTEROL SULFATE [Concomitant]
     Active Substance: ALBUTEROL SULFATE
     Indication: Respiration abnormal
     Route: 065
  16. ALLOPURINOL [Concomitant]
     Active Substance: ALLOPURINOL
     Indication: Respiration abnormal
     Route: 065
  17. DICLOFENAC SODIUM [Concomitant]
     Active Substance: DICLOFENAC SODIUM
     Indication: Respiration abnormal
     Route: 065
  18. AKLIEF [Concomitant]
     Active Substance: TRIFAROTENE
     Indication: Respiration abnormal
     Route: 065
  19. LIDEMOL [Concomitant]
     Indication: Respiration abnormal
     Route: 065
  20. HYDROXYZINE HYDROCHLORIDE [Concomitant]
     Active Substance: HYDROXYZINE HYDROCHLORIDE
     Indication: Respiration abnormal
     Dosage: PRN
     Route: 065
  21. ZYRTEC [Concomitant]
     Active Substance: CETIRIZINE HYDROCHLORIDE
     Indication: Product used for unknown indication
     Route: 065
  22. ZITHROMAX [Concomitant]
     Active Substance: AZITHROMYCIN DIHYDRATE
     Indication: Illness
     Route: 065

REACTIONS (40)
  - Spinal fracture [Recovered/Resolved]
  - Liver injury [Unknown]
  - Weight increased [Unknown]
  - Nasopharyngitis [Unknown]
  - Lipoma [Unknown]
  - Bone pain [Unknown]
  - Arthralgia [Not Recovered/Not Resolved]
  - Back pain [Not Recovered/Not Resolved]
  - Somnolence [Not Recovered/Not Resolved]
  - Viral infection [Not Recovered/Not Resolved]
  - Liver function test abnormal [Not Recovered/Not Resolved]
  - Sinus disorder [Not Recovered/Not Resolved]
  - Pain [Unknown]
  - Gingivitis [Unknown]
  - Tooth disorder [Unknown]
  - Fatigue [Unknown]
  - Malaise [Unknown]
  - Oropharyngeal pain [Unknown]
  - Cough [Unknown]
  - Eye disorder [Unknown]
  - Eye pain [Unknown]
  - Stress [Recovered/Resolved]
  - Abdominal pain upper [Unknown]
  - Gastric disorder [Recovering/Resolving]
  - Upper respiratory tract infection [Recovered/Resolved]
  - Road traffic accident [Recovered/Resolved]
  - Pain in extremity [Recovering/Resolving]
  - Hypersensitivity [Recovered/Resolved]
  - Eating disorder [Unknown]
  - Gait inability [Unknown]
  - Dysstasia [Unknown]
  - Tremor [Unknown]
  - Anxiety [Unknown]
  - Fall [Unknown]
  - Memory impairment [Unknown]
  - Feeling abnormal [Unknown]
  - Rib fracture [Unknown]
  - Headache [Not Recovered/Not Resolved]
  - Dizziness [Not Recovered/Not Resolved]
  - Hypertension [Unknown]

NARRATIVE: CASE EVENT DATE: 20161214
